FAERS Safety Report 8595806-1 (Version None)
Quarter: 2012Q3

REPORT INFORMATION
  Report Type: 
  Country: None (occurrence: None)
  Receive Date: 20120815
  Receipt Date: 20120802
  Transmission Date: 20120928
  Serious: No
  Sender: FDA-Public Use
  Company Number: US-ASTRAZENECA-2012SE54669

PATIENT
  Age: 45 Year
  Sex: Male

DRUGS (3)
  1. UNSPECIFIED [Concomitant]
  2. SYMBICORT [Suspect]
     Indication: ASTHMA
     Dosage: 320MCG, 160/4.5 MCG, TWO TIMES A DAY
     Route: 055
  3. VENTOLIN [Concomitant]
     Route: 055

REACTIONS (2)
  - DRUG DOSE OMISSION [None]
  - DYSPNOEA [None]
